FAERS Safety Report 8616017 (Version 2)
Quarter: 2012Q4

REPORT INFORMATION
  Report Type: 
  Country: US (occurrence: US)
  Receive Date: 20120614
  Receipt Date: 20120927
  Transmission Date: 20130627
  Serious: No
  Sender: FDA-Public Use
  Company Number: US-AMGEN-USASP2012032611

PATIENT
  Age: 64 Year
  Sex: Female

DRUGS (6)
  1. PROLIA [Suspect]
     Indication: OSTEOPOROSIS POSTMENOPAUSAL
     Dosage: UNK
     Dates: start: 20120516
  2. PROLIA [Suspect]
  3. BENICAR HCT [Concomitant]
  4. THYROID THERAPY [Concomitant]
  5. METOPROLOL [Concomitant]
  6. CITRACAL [Concomitant]
     Dosage: UNK
     Dates: end: 20120719

REACTIONS (17)
  - Hypertension [Not Recovered/Not Resolved]
  - Abdominal pain [Not Recovered/Not Resolved]
  - Diarrhoea [Not Recovered/Not Resolved]
  - Pain in jaw [Not Recovered/Not Resolved]
  - Dysuria [Not Recovered/Not Resolved]
  - Pollakiuria [Not Recovered/Not Resolved]
  - Micturition urgency [Not Recovered/Not Resolved]
  - Blood urine present [Not Recovered/Not Resolved]
  - Swelling [Not Recovered/Not Resolved]
  - Seborrhoea [Not Recovered/Not Resolved]
  - Skin reaction [Not Recovered/Not Resolved]
  - Myalgia [Unknown]
  - Blood cholesterol increased [Unknown]
  - Cystitis [Unknown]
  - Back pain [Unknown]
  - Pain in extremity [Unknown]
  - Rash [Not Recovered/Not Resolved]
